FAERS Safety Report 8291579-0 (Version None)
Quarter: 2012Q2

REPORT INFORMATION
  Report Type: 
  Country: None (occurrence: None)
  Receive Date: 20120417
  Receipt Date: 20120406
  Transmission Date: 20120825
  Serious: Yes (Other)
  Sender: FDA-Public Use
  Company Number: JP-VERTEX PHARMACEUTICALS INC.-AE-2012-001925

PATIENT
  Age: 66 Year
  Sex: Male

DRUGS (10)
  1. PEGINTERFERON ALFA-2B [Concomitant]
     Indication: HEPATITIS C
     Route: 051
     Dates: start: 20120130, end: 20120227
  2. RIBAVIRIN [Concomitant]
     Route: 048
     Dates: start: 20120215, end: 20120220
  3. NIZATIDINE [Concomitant]
     Route: 048
     Dates: start: 20120201, end: 20120227
  4. CANDESARTAN CILEXETIL [Concomitant]
     Route: 048
     Dates: end: 20120201
  5. RIBAVIRIN [Concomitant]
     Indication: HEPATITIS C
     Route: 048
     Dates: start: 20120130, end: 20120214
  6. FEBURIC [Concomitant]
     Route: 048
     Dates: start: 20120211, end: 20120227
  7. RIBAVIRIN [Concomitant]
     Route: 048
     Dates: start: 20120221, end: 20120227
  8. CLARITIN [Concomitant]
     Indication: HEPATITIS C
     Route: 048
     Dates: start: 20120130, end: 20120220
  9. TELAVIC (TELAPREVIR) [Suspect]
     Indication: HEPATITIS C
     Route: 048
     Dates: start: 20120130, end: 20120203
  10. CONIEL [Concomitant]
     Route: 048
     Dates: end: 20120210

REACTIONS (7)
  - DEHYDRATION [None]
  - RETINOPATHY [None]
  - RENAL DISORDER [None]
  - VOMITING [None]
  - BLOOD URIC ACID INCREASED [None]
  - ANAEMIA [None]
  - DECREASED APPETITE [None]
